FAERS Safety Report 9054828 (Version 1)
Quarter: 2013Q1

REPORT INFORMATION
  Report Type: Spontaneous
  Country: FR (occurrence: FR)
  Receive Date: 20130208
  Receipt Date: 20130208
  Transmission Date: 20140127
  Serious: Yes (Life-Threatening)
  Sender: FDA-Public Use
  Company Number: FR-SANOFI-AVENTIS-2013SA009395

PATIENT
  Age: 64 Year
  Sex: Male

DRUGS (15)
  1. DETICENE [Suspect]
     Indication: HODGKIN^S DISEASE
     Route: 042
     Dates: start: 20120521, end: 20120924
  2. SECTRAL [Suspect]
     Indication: PRODUCT USED FOR UNKNOWN INDICATION
     Route: 048
  3. KARDEGIC [Suspect]
     Indication: PRODUCT USED FOR UNKNOWN INDICATION
     Route: 048
  4. PLAVIX [Suspect]
     Indication: PRODUCT USED FOR UNKNOWN INDICATION
     Route: 048
  5. BLEOMYCINE [Suspect]
     Indication: HODGKIN^S DISEASE
     Route: 042
     Dates: start: 20120521, end: 20120924
  6. ADRIBLASTINE [Suspect]
     Indication: HODGKIN^S DISEASE
     Route: 042
     Dates: start: 20120521, end: 20120924
  7. VELBE [Suspect]
     Indication: HODGKIN^S DISEASE
     Route: 042
     Dates: start: 20120521, end: 20120924
  8. METHYLPREDNISOLONE [Suspect]
     Indication: HODGKIN^S DISEASE
     Dosage: STRENGTH- 120 MG
     Route: 042
     Dates: start: 20120521
  9. TAHOR [Suspect]
     Indication: PRODUCT USED FOR UNKNOWN INDICATION
     Dosage: STRENGTH- 40 MG
     Route: 048
  10. INEXIUM [Suspect]
     Indication: PRODUCT USED FOR UNKNOWN INDICATION
     Dosage: STRENGTH- 40 MG
     Route: 048
  11. COVERAM [Suspect]
     Indication: PRODUCT USED FOR UNKNOWN INDICATION
     Dosage: STRENGTH- 5 MG/5 MG DOSE:1 UNIT(S)
     Route: 048
  12. PROCORALAN [Suspect]
     Indication: PRODUCT USED FOR UNKNOWN INDICATION
     Dosage: STRENGTH- 5 MG
     Route: 048
  13. XANAX [Suspect]
     Indication: PRODUCT USED FOR UNKNOWN INDICATION
     Route: 048
  14. ZOPHREN [Concomitant]
     Dosage: DURING THE 10 CURES
     Route: 042
  15. POLARAMINE [Concomitant]
     Dosage: CURES 1 TO 4 AND CURE 9
     Route: 042

REACTIONS (2)
  - Pulmonary fibrosis [Recovering/Resolving]
  - Respiratory distress [Recovered/Resolved]
